FAERS Safety Report 4343989-1 (Version None)
Quarter: 2004Q2

REPORT INFORMATION
  Report Type: 
  Country: None (occurrence: None)
  Receive Date: 20040421
  Receipt Date: 20040421
  Transmission Date: 20050107
  Serious: Yes (Other)
  Sender: FDA-Public Use
  Company Number: None

PATIENT
  Age: 72 Year
  Sex: Male

DRUGS (3)
  1. FOLIC ACID TAB [Suspect]
     Indication: BLOOD HOMOCYSTEINE INCREASED
     Dosage: 1 MG PO DAILY
     Route: 048
     Dates: start: 20040322, end: 20040403
  2. ATENOLOL [Concomitant]
  3. HYDROCHLOROTHIAZIDE [Concomitant]

REACTIONS (2)
  - ANGINA PECTORIS [None]
  - DIZZINESS [None]
